FAERS Safety Report 23371199 (Version 1)
Quarter: 2024Q1

REPORT INFORMATION
  Report Type: Report from Study
  Country: DE (occurrence: DE)
  Receive Date: 20240105
  Receipt Date: 20240105
  Transmission Date: 20240409
  Serious: Yes (Hospitalization)
  Sender: FDA-Public Use
  Company Number: DE-JNJFOC-20231269417

PATIENT
  Age: 75 Year
  Sex: Male
  Weight: 64 kg

DRUGS (31)
  1. DEXAMETHASONE [Suspect]
     Active Substance: DEXAMETHASONE
     Indication: Plasma cell myeloma
     Dosage: 24,31-MAY,07,14,21,28-JUN,05,19-JUL,02,16,30-AUG,13,28-SEP,12,25-OCT,22-NOV,20-DEC-2023
     Route: 042
     Dates: start: 20230517
  2. DEXAMETHASONE [Suspect]
     Active Substance: DEXAMETHASONE
     Dosage: 08-NOV-2023, 15-NOV-2023, 29-NOV-2023, 06-DEC-2023, 13-DEC-2023
     Route: 048
     Dates: start: 20231101
  3. DEXAMETHASONE [Suspect]
     Active Substance: DEXAMETHASONE
     Route: 048
     Dates: start: 20230509
  4. DEXAMETHASONE [Suspect]
     Active Substance: DEXAMETHASONE
     Dosage: 26-JUL-2023, 09-AUG-2023, 23-AUG-2023, 06-SEP-2023, 20-SEP-2023, 05-OCT-2023, 19-OCT-2023,
     Route: 048
     Dates: start: 20230712
  5. LENALIDOMIDE [Suspect]
     Active Substance: LENALIDOMIDE
     Indication: Plasma cell myeloma
     Route: 048
     Dates: start: 20230927, end: 20231017
  6. LENALIDOMIDE [Suspect]
     Active Substance: LENALIDOMIDE
     Route: 048
     Dates: start: 20230830, end: 20230919
  7. LENALIDOMIDE [Suspect]
     Active Substance: LENALIDOMIDE
     Route: 048
     Dates: start: 20230802, end: 20230822
  8. LENALIDOMIDE [Suspect]
     Active Substance: LENALIDOMIDE
     Route: 048
     Dates: start: 20230510, end: 20230530
  9. LENALIDOMIDE [Suspect]
     Active Substance: LENALIDOMIDE
     Route: 048
     Dates: start: 20230705, end: 20230725
  10. LENALIDOMIDE [Suspect]
     Active Substance: LENALIDOMIDE
     Route: 048
     Dates: start: 20231122, end: 20231212
  11. LENALIDOMIDE [Suspect]
     Active Substance: LENALIDOMIDE
     Route: 048
     Dates: start: 20231025, end: 20231114
  12. LENALIDOMIDE [Suspect]
     Active Substance: LENALIDOMIDE
     Route: 048
     Dates: start: 20230607, end: 20230627
  13. DARATUMUMAB [Suspect]
     Active Substance: DARATUMUMAB
     Indication: Plasma cell myeloma
     Route: 058
     Dates: start: 20230510
  14. DARATUMUMAB [Suspect]
     Active Substance: DARATUMUMAB
     Dosage: 24,31-MAY,07,14,21,28-JUN,05,19-JUL,02,16,30-AUG,13,27-SEP,11,25-OCT,22-NOV,20-DEC-2023
     Route: 058
     Dates: start: 20230517
  15. DEXAMETHASONE [Suspect]
     Active Substance: DEXAMETHASONE
     Indication: Plasma cell myeloma
     Dosage: 08-NOV-2023, 15-NOV-2023, 29-NOV-2023, 06-DEC-2023, 13-DEC-2023
     Route: 048
     Dates: start: 20231101
  16. DEXAMETHASONE [Suspect]
     Active Substance: DEXAMETHASONE
     Route: 048
     Dates: start: 20230509
  17. DEXAMETHASONE [Suspect]
     Active Substance: DEXAMETHASONE
     Dosage: 26-JUL-2023, 09-AUG-2023, 23-AUG-2023, 06-SEP-2023, 20-SEP-2023, 05-OCT-2023, 19-OCT-2023,
     Route: 048
     Dates: start: 20230712
  18. TORSEMIDE [Concomitant]
     Active Substance: TORSEMIDE
     Indication: Coronary artery disease
     Route: 048
  19. FOLIC ACID [Concomitant]
     Active Substance: FOLIC ACID
     Indication: Prophylaxis
     Route: 048
  20. MORPHINE [Concomitant]
     Active Substance: MORPHINE
     Indication: Spinal cord neoplasm
     Dosage: PM (AS NEEDED)
     Route: 048
     Dates: start: 20230531
  21. HYDROMORPHONE [Concomitant]
     Active Substance: HYDROMORPHONE
     Indication: Spinal cord neoplasm
     Route: 048
     Dates: start: 20230428
  22. HYDROMORPHONE [Concomitant]
     Active Substance: HYDROMORPHONE
     Dosage: PM (AS NEEDED)
     Route: 048
     Dates: start: 20230428
  23. VALSARTAN [Concomitant]
     Active Substance: VALSARTAN
     Indication: Coronary artery disease
     Route: 048
  24. ACYCLOVIR [Concomitant]
     Active Substance: ACYCLOVIR
     Indication: Prophylaxis
     Route: 048
     Dates: start: 20230515
  25. DAPAGLIFLOZIN [Concomitant]
     Active Substance: DAPAGLIFLOZIN
     Indication: Diabetes mellitus
     Route: 048
  26. EPLERENONE [Concomitant]
     Active Substance: EPLERENONE
     Indication: Coronary artery disease
     Route: 048
  27. ALLOPURINOL [Concomitant]
     Active Substance: ALLOPURINOL
     Indication: Prophylaxis
     Route: 048
  28. CARVEDILOL [Concomitant]
     Active Substance: CARVEDILOL
     Indication: Coronary artery disease
     Route: 048
  29. SACUBITRIL [Concomitant]
     Active Substance: SACUBITRIL
     Indication: Coronary artery disease
     Route: 048
  30. DIGITOXIN [Concomitant]
     Active Substance: DIGITOXIN
     Indication: Coronary artery disease
     Route: 048
  31. DABIGATRAN ETEXILATE [Concomitant]
     Active Substance: DABIGATRAN ETEXILATE
     Indication: Prophylaxis
     Route: 048

REACTIONS (1)
  - Sinus node dysfunction [Recovered/Resolved]

NARRATIVE: CASE EVENT DATE: 20231212
